FAERS Safety Report 17091459 (Version 1)
Quarter: 2019Q4

REPORT INFORMATION
  Report Type: Spontaneous
  Country: US (occurrence: US)
  Receive Date: 20191129
  Receipt Date: 20191129
  Transmission Date: 20200122
  Serious: No
  Sender: FDA-Public Use
  Company Number: US-ASTRAZENECA-2019SF70814

PATIENT
  Age: 69 Year
  Sex: Male
  Weight: 99.8 kg

DRUGS (2)
  1. OMEPRAZOLE. [Concomitant]
     Active Substance: OMEPRAZOLE
     Indication: GASTROOESOPHAGEAL REFLUX DISEASE
     Dosage: UNK
  2. NEXIUM 24HR [Suspect]
     Active Substance: ESOMEPRAZOLE MAGNESIUM
     Indication: GASTROOESOPHAGEAL REFLUX DISEASE
     Route: 048
     Dates: start: 201901, end: 201910

REACTIONS (8)
  - Asthenia [Recovered/Resolved]
  - Loss of personal independence in daily activities [Unknown]
  - Muscular weakness [Unknown]
  - Feeling abnormal [Unknown]
  - Dizziness [Recovered/Resolved]
  - Dysstasia [Recovered/Resolved]
  - Hyperhidrosis [Unknown]
  - Product use issue [Unknown]

NARRATIVE: CASE EVENT DATE: 201910
